FAERS Safety Report 25084414 (Version 2)
Quarter: 2025Q3

REPORT INFORMATION
  Report Type: Spontaneous
  Country: CA (occurrence: CA)
  Receive Date: 20250317
  Receipt Date: 20250903
  Transmission Date: 20251020
  Serious: Yes (Other)
  Sender: CELLTRION
  Company Number: CA-CELLTRION INC.-2025CA007747

PATIENT

DRUGS (7)
  1. TRUXIMA [Suspect]
     Active Substance: RITUXIMAB-ABBS
     Indication: Diffuse large B-cell lymphoma
     Dates: start: 202206, end: 202209
  2. TRUXIMA [Suspect]
     Active Substance: RITUXIMAB-ABBS
  3. CYCLOPHOSPHAMIDE\DOXORUBICIN\PREDNISONE\VINCRISTINE [Suspect]
     Active Substance: CYCLOPHOSPHAMIDE\DOXORUBICIN\PREDNISONE\VINCRISTINE
     Indication: Diffuse large B-cell lymphoma
     Dates: start: 202206, end: 202209
  4. METHOTREXATE [Suspect]
     Active Substance: METHOTREXATE
     Indication: Diffuse large B-cell lymphoma
  5. CISPLATIN [Suspect]
     Active Substance: CISPLATIN
     Indication: Diffuse large B-cell lymphoma
  6. DEXAMETHASONE [Suspect]
     Active Substance: DEXAMETHASONE
  7. GEMCITABINE [Suspect]
     Active Substance: GEMCITABINE

REACTIONS (2)
  - Diffuse large B-cell lymphoma recurrent [Unknown]
  - Product use issue [Unknown]

NARRATIVE: CASE EVENT DATE: 20241201
